FAERS Safety Report 17065847 (Version 9)
Quarter: 2022Q3

REPORT INFORMATION
  Report Type: Spontaneous
  Country: PL (occurrence: PL)
  Receive Date: 20191122
  Receipt Date: 20220719
  Transmission Date: 20221027
  Serious: Yes (Hospitalization, Disabling, Other)
  Sender: FDA-Public Use
  Company Number: PL-PMCS-03672019

PATIENT
  Age: 56 Year
  Sex: Female

DRUGS (24)
  1. SERTRALINE [Interacting]
     Active Substance: SERTRALINE HYDROCHLORIDE
     Indication: Depression
     Dosage: 100 MILLIGRAM, QD (100 MG, PER DAY, IN THE MORNING)
     Route: 065
  2. SERTRALINE [Interacting]
     Active Substance: SERTRALINE HYDROCHLORIDE
     Dosage: 100 MILLIGRAM, MORNINGS - SINCE ONE YEAR
     Route: 065
  3. SERTRALINE [Interacting]
     Active Substance: SERTRALINE HYDROCHLORIDE
     Dosage: 100 MG MORNINGS - SINCE ONE YEAR
     Route: 065
  4. TRAMADOL [Interacting]
     Active Substance: TRAMADOL
     Indication: Arthralgia
     Dosage: 300 MG, QD
     Route: 065
  5. OMEPRAZOLE [Interacting]
     Active Substance: OMEPRAZOLE
     Indication: Sacral pain
     Dosage: 40 MILLIGRAM, QD
     Route: 065
  6. OMEPRAZOLE [Interacting]
     Active Substance: OMEPRAZOLE
     Indication: Spinal pain
     Dosage: UNK
     Route: 065
  7. OMEPRAZOLE [Interacting]
     Active Substance: OMEPRAZOLE
     Indication: Back pain
  8. ACETAMINOPHEN [Suspect]
     Active Substance: ACETAMINOPHEN
     Indication: Arthralgia
     Dosage: 2600 MG, QD
     Route: 065
  9. INDAPAMIDE [Interacting]
     Active Substance: INDAPAMIDE
     Indication: Hypertension
     Dosage: 1.5 MILLIGRAM, QD (QD, SR)
     Route: 065
  10. INDAPAMIDE [Interacting]
     Active Substance: INDAPAMIDE
     Dosage: UNK
     Route: 065
  11. CELECOXIB [Interacting]
     Active Substance: CELECOXIB
     Indication: Back pain
     Dosage: 400 MILLIGRAM, QD
     Route: 065
  12. CELECOXIB [Interacting]
     Active Substance: CELECOXIB
     Indication: Pain
     Dosage: UNK
     Route: 065
  13. CELECOXIB [Interacting]
     Active Substance: CELECOXIB
     Indication: Spinal pain
  14. CELECOXIB [Interacting]
     Active Substance: CELECOXIB
     Indication: Sacral pain
  15. HYDROXYZINE [Interacting]
     Active Substance: HYDROXYZINE HYDROCHLORIDE
     Indication: Initial insomnia
     Dosage: 25 MILLIGRAM, QD (IN THE EVENING)
     Route: 065
  16. HYDROXYZINE [Interacting]
     Active Substance: HYDROXYZINE HYDROCHLORIDE
     Indication: Insomnia
     Dosage: USED IN THE EVENING
     Route: 065
  17. HYDROXYZINE [Interacting]
     Active Substance: HYDROXYZINE HYDROCHLORIDE
     Indication: Initial insomnia
  18. ENALAPRIL [Interacting]
     Active Substance: ENALAPRIL
     Indication: Hypertension
     Dosage: 20 MILLIGRAM, QD
     Route: 065
  19. ENALAPRIL [Interacting]
     Active Substance: ENALAPRIL
     Dosage: UNK
     Route: 065
  20. CIPROFLOXACIN [Interacting]
     Active Substance: CIPROFLOXACIN
     Indication: Bronchitis
     Dosage: 500 MG, BID
     Route: 048
  21. TRAZODONE [Interacting]
     Active Substance: TRAZODONE HYDROCHLORIDE
     Indication: Insomnia
     Dosage: 75 MG, BEFORE GOING TO SLEEP
     Route: 065
  22. KETOPROFEN [Interacting]
     Active Substance: KETOPROFEN
     Indication: Pain
     Dosage: 300 MG, TID
     Route: 048
  23. FLUOXETINE [Interacting]
     Active Substance: FLUOXETINE HYDROCHLORIDE
     Indication: Depression
     Dosage: 40 MG,
     Route: 065
  24. INDAPAMIDE [Concomitant]
     Active Substance: INDAPAMIDE
     Indication: Hypertension
     Dosage: 1.5 MILLIGRAM, QD

REACTIONS (12)
  - Burning mouth syndrome [Recovered/Resolved]
  - Iron deficiency [Recovered/Resolved]
  - Oral discomfort [Recovered/Resolved]
  - Dysphagia [Recovered/Resolved]
  - Drug interaction [Recovered/Resolved]
  - Product use in unapproved indication [Unknown]
  - Hypophagia [Recovered/Resolved]
  - Pain [Recovered/Resolved]
  - Serotonin syndrome [Unknown]
  - Upper gastrointestinal haemorrhage [Unknown]
  - Drug ineffective [Unknown]
  - Intentional product misuse [Unknown]
